FAERS Safety Report 22614995 (Version 1)
Quarter: 2023Q2

REPORT INFORMATION
  Report Type: Report from Study
  Country: PE (occurrence: PE)
  Receive Date: 20230619
  Receipt Date: 20230619
  Transmission Date: 20230722
  Serious: Yes (Other)
  Sender: FDA-Public Use
  Company Number: PE-002147023-NVSC2022PE184468

PATIENT
  Age: 54 Year
  Sex: Female
  Weight: 73 kg

DRUGS (2)
  1. KISQALI [Suspect]
     Active Substance: RIBOCICLIB
     Indication: Breast cancer metastatic
     Dosage: 600 MG, QD
     Route: 048
     Dates: start: 20220715
  2. KISQALI [Suspect]
     Active Substance: RIBOCICLIB
     Dosage: 1 DOSAGE FORM, QD
     Route: 048
     Dates: start: 20230608

REACTIONS (23)
  - Tumour marker increased [Unknown]
  - Pain in extremity [Unknown]
  - Skin disorder [Unknown]
  - Skin exfoliation [Unknown]
  - Discomfort [Unknown]
  - Urticaria [Unknown]
  - Injury [Unknown]
  - Stress [Unknown]
  - Psoriasis [Unknown]
  - Wound [Unknown]
  - Anxiety [Unknown]
  - Scratch [Unknown]
  - Nasal discomfort [Unknown]
  - Parosmia [Unknown]
  - COVID-19 [Unknown]
  - Weight decreased [Unknown]
  - Dyspepsia [Unknown]
  - Dyspnoea [Unknown]
  - Back pain [Recovered/Resolved]
  - Lymphocyte count decreased [Unknown]
  - Dry skin [Unknown]
  - Pruritus [Unknown]
  - Breast disorder [Unknown]

NARRATIVE: CASE EVENT DATE: 20220901
